FAERS Safety Report 8072399-9 (Version None)
Quarter: 2012Q1

REPORT INFORMATION
  Report Type: 
  Country: None (occurrence: None)
  Receive Date: 20120126
  Receipt Date: 20120120
  Transmission Date: 20120608
  Serious: Yes (Death, Life-Threatening, Hospitalization)
  Sender: FDA-Public Use
  Company Number: JP-BAYER-2011-010317

PATIENT
  Age: 69 Year
  Sex: Male
  Weight: 58 kg

DRUGS (5)
  1. AMLODIPINE [Concomitant]
     Indication: HYPERTENSION
     Dosage: UNK
     Route: 048
  2. RABEPRAZOLE SODIUM [Concomitant]
     Indication: GASTRIC ULCER
     Dosage: UNK
     Route: 048
  3. NEXAVAR [Suspect]
     Indication: HEPATIC NEOPLASM MALIGNANT
     Dosage: DAILY DOSE 600 MG
     Route: 048
     Dates: start: 20101118, end: 20110310
  4. PLATELET AGGREGATION INHIBITORS [Concomitant]
     Indication: ANGINA PECTORIS
     Dosage: UNK
     Route: 048
  5. URSO 250 [Concomitant]
     Indication: LIVER DISORDER
     Dosage: UNK
     Route: 048

REACTIONS (5)
  - PUTAMEN HAEMORRHAGE [None]
  - CIRCULATORY COLLAPSE [None]
  - ALTERED STATE OF CONSCIOUSNESS [None]
  - TRANSAMINASES INCREASED [None]
  - RESPIRATORY ARREST [None]
